FAERS Safety Report 15126641 (Version 1)
Quarter: 2018Q3

REPORT INFORMATION
  Report Type: Spontaneous
  Country: US (occurrence: US)
  Receive Date: 20180614
  Receipt Date: 20180614
  Transmission Date: 20181010
  Serious: Yes (Hospitalization)
  Sender: FDA-Public Use
  Company Number: None

PATIENT
  Age: 74 Year
  Sex: Female
  Weight: 59.1 kg

DRUGS (9)
  1. AZITHROMYCIN 500MG IVPB Q 24H [Concomitant]
     Active Substance: AZITHROMYCIN
     Dates: start: 20170728, end: 20170730
  2. XOPENEX 125MG/3ML NEB INH TID [Concomitant]
     Dates: start: 20170727, end: 20170731
  3. MEDROL DOSEPAK 4MG PO ONCE DAILY [Concomitant]
     Dates: start: 20170729, end: 20170731
  4. PERCOCET 5?325MG PO Q 4H PRN [Concomitant]
     Dates: start: 20170727, end: 20170731
  5. ENOXAPARIN 40MG SQ Q 24H [Concomitant]
     Dates: start: 20170727, end: 20170730
  6. CEFTRIAXONE 1GM IVPB Q 24H [Concomitant]
     Dates: start: 20170727, end: 20170730
  7. ANORO ELLIPTA [Suspect]
     Active Substance: UMECLIDINIUM BROMIDE\VILANTEROL TRIFENATATE
     Dates: start: 20170729, end: 20170730
  8. SOLUMEDROL 60MG IV Q 12H [Concomitant]
     Dates: start: 20170727, end: 20170729
  9. SODIUM BICARB 650MG PO TID [Concomitant]
     Dates: start: 20170727, end: 20170731

REACTIONS (2)
  - Nausea [None]
  - Urinary retention [None]

NARRATIVE: CASE EVENT DATE: 20170730
